FAERS Safety Report 12841473 (Version 1)
Quarter: 2016Q4

REPORT INFORMATION
  Report Type: Spontaneous
  Country: JP (occurrence: JP)
  Receive Date: 20161012
  Receipt Date: 20161012
  Transmission Date: 20170207
  Serious: Yes (Other)
  Sender: FDA-Public Use
  Company Number: JP-OTSUKA-JP-2011-11152

PATIENT
  Age: 85 Year
  Sex: Female

DRUGS (3)
  1. ARGATROBAN MONOHYDRATE [Concomitant]
     Indication: CEREBRAL INFARCTION
     Dosage: UNK
     Route: 041
  2. PLETAAL POWDER 20% [Suspect]
     Active Substance: CILOSTAZOL
     Indication: CEREBRAL INFARCTION
     Dosage: UNK
     Route: 048
  3. PLETAAL OD TABLETS 50MG [Suspect]
     Active Substance: CILOSTAZOL
     Indication: CEREBRAL INFARCTION
     Dosage: UNK
     Route: 048

REACTIONS (3)
  - Supraventricular extrasystoles [Unknown]
  - Anaemia [Unknown]
  - Colon cancer [Unknown]
